FAERS Safety Report 4811978-6 (Version None)
Quarter: 2005Q4

REPORT INFORMATION
  Report Type: 
  Country: None (occurrence: None)
  Receive Date: 20051028
  Receipt Date: 20041022
  Transmission Date: 20060501
  Serious: No
  Sender: FDA-Public Use
  Company Number: US-GLAXOSMITHKLINE-A0530889A

PATIENT
  Age: 46 Year
  Sex: Female

DRUGS (16)
  1. ADVAIR DISKUS 100/50 [Suspect]
     Indication: CHRONIC OBSTRUCTIVE PULMONARY DISEASE
     Dosage: 1PUFF TWICE PER DAY
     Route: 055
     Dates: start: 20040823
  2. AVANDIA [Concomitant]
  3. ALTACE [Concomitant]
  4. NORVASC [Concomitant]
  5. DIAZEPAM [Concomitant]
  6. NEURONTIN [Concomitant]
  7. OXYCODONE [Concomitant]
  8. ZYRTEC [Concomitant]
  9. ZELNORM [Concomitant]
  10. ASPIRIN [Concomitant]
  11. NASACORT [Concomitant]
  12. METFORMIN HCL [Concomitant]
  13. METOPROLOL [Concomitant]
  14. PHENYLEPHRINE [Concomitant]
  15. LIDODERM PATCH [Concomitant]
  16. NORTRIPTYLINE HCL [Concomitant]

REACTIONS (2)
  - EAR PAIN [None]
  - PHARYNGOLARYNGEAL PAIN [None]
